FAERS Safety Report 22046527 (Version 1)
Quarter: 2023Q1

REPORT INFORMATION
  Report Type: Spontaneous
  Country: US (occurrence: US)
  Receive Date: 20230228
  Receipt Date: 20230228
  Transmission Date: 20230418
  Serious: Yes (Other)
  Sender: FDA-Public Use
  Company Number: US-NOVOPROD-1024058

PATIENT
  Sex: Female
  Weight: 60.317 kg

DRUGS (2)
  1. WEGOVY [Suspect]
     Active Substance: SEMAGLUTIDE
     Indication: Weight decreased
     Dosage: 2.4 MG
     Route: 058
     Dates: start: 2021
  2. METFORMIN [Concomitant]
     Active Substance: METFORMIN HYDROCHLORIDE
     Indication: Product used for unknown indication
     Dosage: 2000MG TWICE DAILY

REACTIONS (5)
  - Coeliac disease [Unknown]
  - Polyp [Recovered/Resolved]
  - Irritable bowel syndrome [Unknown]
  - Wheezing [Unknown]
  - Constipation [Unknown]
